FAERS Safety Report 10738206 (Version 1)
Quarter: 2015Q1

REPORT INFORMATION
  Report Type: Other
  Country: DK (occurrence: DK)
  Receive Date: 20150126
  Receipt Date: 20150126
  Transmission Date: 20150721
  Serious: Yes (Disabling)
  Sender: FDA-Public Use
  Company Number: DK-MYLANLABS-2015M1000992

PATIENT

DRUGS (2)
  1. BAKLOFEN MYLAN [Suspect]
     Active Substance: BACLOFEN
     Indication: PARESIS
     Dosage: DOSIS: 10 MG X 3 EFTER GRADVIS ?GNING, STYRKE: 10 MG
     Route: 048
     Dates: start: 20141110, end: 20141121
  2. LYRICA [Concomitant]
     Active Substance: PREGABALIN
     Indication: PAIN
     Dosage: UNK
     Dates: start: 20140204

REACTIONS (2)
  - Disability [Recovered/Resolved]
  - Hemiparesis [Recovered/Resolved]

NARRATIVE: CASE EVENT DATE: 20141111
